FAERS Safety Report 6191012-9 (Version None)
Quarter: 2009Q2

REPORT INFORMATION
  Report Type: 
  Country: None (occurrence: None)
  Receive Date: 20090513
  Receipt Date: 20090429
  Transmission Date: 20091009
  Serious: Yes (Other)
  Sender: FDA-Public Use
  Company Number: CIP09001151

PATIENT
  Sex: Female

DRUGS (1)
  1. ASACOL [Suspect]
     Dosage: 400 MG ONE DOSE ONLY, ORAL
     Route: 048
     Dates: start: 20090204, end: 20090205

REACTIONS (12)
  - ERYTHEMA [None]
  - EYE HAEMORRHAGE [None]
  - FEELING HOT [None]
  - LACRIMATION INCREASED [None]
  - NASAL DISORDER [None]
  - NAUSEA [None]
  - SCAB [None]
  - SCLERAL DISCOLOURATION [None]
  - SKIN BURNING SENSATION [None]
  - SKIN EXFOLIATION [None]
  - UNEVALUABLE EVENT [None]
  - VISUAL ACUITY REDUCED [None]
